FAERS Safety Report 5838442-X (Version None)
Quarter: 2008Q3

REPORT INFORMATION
  Report Type: 
  Country: None (occurrence: None)
  Receive Date: 20080808
  Receipt Date: 20080723
  Transmission Date: 20090109
  Serious: Yes (Hospitalization)
  Sender: FDA-Public Use
  Company Number: JP-ASTRAZENECA-2008SE03760

PATIENT
  Age: 49 Year
  Sex: Female

DRUGS (6)
  1. AMIAS 4MG TABLETS [Suspect]
     Indication: HYPERTENSION
     Route: 048
     Dates: start: 20080627, end: 20080703
  2. AMLODIPINE [Concomitant]
     Indication: HYPERTENSION
     Route: 048
  3. BECOTIDE [Concomitant]
     Indication: ASTHMA
     Route: 055
  4. RANITIDINE HCL [Concomitant]
     Route: 048
  5. ALBUTEROL [Concomitant]
     Indication: ASTHMA
     Route: 055
  6. SIMVASTATIN [Concomitant]
     Indication: HYPERCHOLESTEROLAEMIA
     Route: 048

REACTIONS (2)
  - CHEST PAIN [None]
  - MUSCULOSKELETAL PAIN [None]
